FAERS Safety Report 8261950-1 (Version None)
Quarter: 2012Q2

REPORT INFORMATION
  Report Type: 
  Country: None (occurrence: None)
  Receive Date: 20120405
  Receipt Date: 20120329
  Transmission Date: 20120825
  Serious: Yes (Other)
  Sender: FDA-Public Use
  Company Number: US-PURDUE-USA-2012-0084494

PATIENT
  Sex: Female

DRUGS (2)
  1. BUTRANS [Suspect]
     Indication: FIBROMYALGIA
     Dosage: 5 MCG/HR,
     Route: 062
     Dates: start: 20111024, end: 20120321
  2. BUTRANS [Suspect]
     Dosage: TWO 5MCG/HR PATCHES FOR 1 WEEK AND THEN ONE 5MCG/HR PATCH FOR ONE WEEK
     Route: 062
     Dates: start: 20120321, end: 20120301

REACTIONS (3)
  - HEPATOTOXICITY [None]
  - INCORRECT DOSE ADMINISTERED [None]
  - LIVER FUNCTION TEST ABNORMAL [None]
